FAERS Safety Report 4393191-2 (Version None)
Quarter: 2004Q3

REPORT INFORMATION
  Report Type: 
  Country: None (occurrence: None)
  Receive Date: 20040702
  Receipt Date: 20040623
  Transmission Date: 20050211
  Serious: Yes (Death)
  Sender: FDA-Public Use
  Company Number: JP-JNJFOC-20040607182

PATIENT
  Age: 75 Year
  Sex: Male

DRUGS (1)
  1. LEUSTATIN [Suspect]
     Indication: MANTLE CELL LYMPHOMA
     Dosage: 5 MG, 1 IN 1 DAY, INTRAVENOUS
     Route: 042
     Dates: start: 20040607, end: 20040611

REACTIONS (1)
  - WHITE BLOOD CELL COUNT DECREASED [None]
